FAERS Safety Report 9680953 (Version 2)
Quarter: 2013Q4

REPORT INFORMATION
  Report Type: Report from Study
  Country: US (occurrence: US)
  Receive Date: 20131111
  Receipt Date: 20131111
  Transmission Date: 20140711
  Serious: Yes (Death)
  Sender: FDA-Public Use
  Company Number: US-ROCHE-1263088

PATIENT
  Sex: 0

DRUGS (6)
  1. HERCEPTIN [Suspect]
     Indication: BREAST CANCER
     Route: 065
  2. ADRIAMYCIN [Concomitant]
  3. CYTOXAN [Concomitant]
  4. TAXOL [Concomitant]
  5. TAXOTERE [Concomitant]
  6. CARBOPLATIN [Concomitant]

REACTIONS (2)
  - Death [Fatal]
  - Performance status decreased [Unknown]
